FAERS Safety Report 8800751 (Version 1)
Quarter: 2012Q4

REPORT INFORMATION
  Report Type: 
  Country: CA (occurrence: CA)
  Receive Date: 20120921
  Receipt Date: 20120921
  Transmission Date: 20130627
  Serious: Yes (Hospitalization)
  Sender: FDA-Public Use
  Company Number: CA-B.I. PHARMACEUTICALS,INC./RIDGEFIELD-2012-CN-01871CN

PATIENT
  Age: 80 Year
  Sex: Male

DRUGS (4)
  1. PRADAX [Suspect]
     Indication: ATRIAL FIBRILLATION
     Dosage: 220 mg
     Dates: start: 201205
  2. LIPITOR [Concomitant]
  3. ADVAIR [Concomitant]
  4. SPIRIVA [Concomitant]

REACTIONS (3)
  - Lower gastrointestinal haemorrhage [Not Recovered/Not Resolved]
  - Diverticulum [Not Recovered/Not Resolved]
  - Hypotension [Unknown]
